FAERS Safety Report 5659146-2 (Version None)
Quarter: 2008Q1

REPORT INFORMATION
  Report Type: 
  Country: None (occurrence: None)
  Receive Date: 20080311
  Receipt Date: 20070604
  Transmission Date: 20080703
  Serious: No
  Sender: FDA-Public Use
  Company Number: US-BAYER-200711789BCC

PATIENT
  Age: 50 Year
  Sex: Female
  Weight: 104 kg

DRUGS (1)
  1. ALEVE [Suspect]
     Indication: MYALGIA
     Route: 048
     Dates: start: 20070401

REACTIONS (1)
  - MYALGIA [None]
